FAERS Safety Report 25778650 (Version 1)
Quarter: 2025Q3

REPORT INFORMATION
  Report Type: Spontaneous
  Country: US (occurrence: None)
  Receive Date: 20250908
  Receipt Date: 20250908
  Transmission Date: 20251021
  Serious: Yes (Life-Threatening, Hospitalization, Disabling, Other)
  Sender: FDA-CTU
  Company Number: None

PATIENT
  Age: 30 Year
  Sex: Male
  Weight: 67.5 kg

DRUGS (2)
  1. 7-HYDROXYMITRAGYNINE [Suspect]
     Active Substance: 7-HYDROXYMITRAGYNINE
     Indication: Drug dependence
     Dates: start: 20240901, end: 20250421
  2. 7OH EXTRACT [Concomitant]

REACTIONS (5)
  - Drug abuse [None]
  - Overdose [None]
  - Unresponsive to stimuli [None]
  - Hypothermia [None]
  - Organ failure [None]

NARRATIVE: CASE EVENT DATE: 20250421
